FAERS Safety Report 19416225 (Version 1)
Quarter: 2021Q2

REPORT INFORMATION
  Report Type: Spontaneous
  Country: US (occurrence: US)
  Receive Date: 20210615
  Receipt Date: 20210615
  Transmission Date: 20210717
  Serious: No
  Sender: FDA-Public Use
  Company Number: US-ALLERGAN-2107423US

PATIENT
  Sex: Female

DRUGS (2)
  1. KYBELLA [Suspect]
     Active Substance: DEOXYCHOLIC ACID
     Indication: FAT TISSUE INCREASED
     Dosage: 2 DF, SINGLE
     Route: 065
     Dates: start: 20210122, end: 20210122
  2. KYBELLA [Suspect]
     Active Substance: DEOXYCHOLIC ACID
     Dosage: 3 DF, SINGLE
     Route: 065
     Dates: start: 20201125, end: 20201125

REACTIONS (2)
  - Drug ineffective [Unknown]
  - Condition aggravated [Unknown]
